FAERS Safety Report 11724474 (Version 1)
Quarter: 2015Q4

REPORT INFORMATION
  Report Type: Spontaneous
  Country: US (occurrence: US)
  Receive Date: 20151111
  Receipt Date: 20151111
  Transmission Date: 20160304
  Serious: No
  Sender: FDA-Public Use
  Company Number: US-BAUSCH-BL-2014-008980

PATIENT
  Age: 80 Year
  Sex: Female

DRUGS (3)
  1. TUSSICAPS [Suspect]
     Active Substance: CHLORPHENIRAMINE\CHLORPHENIRAMINE MALEATE\HYDROCODONE\HYDROCODONE BITARTRATE
     Indication: COUGH
     Route: 048
     Dates: end: 20141028
  2. DTP [Concomitant]
     Indication: PRODUCT USED FOR UNKNOWN INDICATION
  3. TUSSICAPS [Suspect]
     Active Substance: CHLORPHENIRAMINE\CHLORPHENIRAMINE MALEATE\HYDROCODONE\HYDROCODONE BITARTRATE
     Indication: ASTHMA

REACTIONS (1)
  - Piloerection [Not Recovered/Not Resolved]

NARRATIVE: CASE EVENT DATE: 20141029
